FAERS Safety Report 5117604-3 (Version None)
Quarter: 2006Q3

REPORT INFORMATION
  Report Type: 
  Country: None (occurrence: None)
  Receive Date: 20060926
  Receipt Date: 20060905
  Transmission Date: 20061208
  Serious: Yes (Death, Hospitalization, Other)
  Sender: FDA-Public Use
  Company Number: CA200604002695

PATIENT
  Age: 87 Year
  Sex: Female

DRUGS (13)
  1. FORTEO [Suspect]
     Indication: OSTEOPOROSIS
     Dosage: 20 UG, DAILY (1/D),
     Dates: start: 20060126, end: 20060401
  2. IPRATROPIUM BROMIDE [Concomitant]
  3. GRAVOL TAB [Concomitant]
  4. ATIVAN [Concomitant]
  5. ASPIRIN [Concomitant]
  6. WARFARIN SODIUM [Concomitant]
  7. ATACAND [Concomitant]
  8. PREDNISONE TAB [Concomitant]
  9. ATENOLOL [Concomitant]
  10. TIMOLOL                    (TIMOLOL) EYE DROPS [Concomitant]
  11. NORTRIPTYLINE HCL [Concomitant]
  12. ACETAMINOPHEN [Concomitant]
  13. FORTEO [Concomitant]

REACTIONS (11)
  - ABASIA [None]
  - CEREBROVASCULAR ACCIDENT [None]
  - ELECTROLYTE DEPLETION [None]
  - FATIGUE [None]
  - FEELING HOT [None]
  - FLUSHING [None]
  - HEPATIC ENZYME INCREASED [None]
  - INTERNATIONAL NORMALISED RATIO DECREASED [None]
  - MUSCLE ATROPHY [None]
  - MUSCULAR WEAKNESS [None]
  - PALLOR [None]
